FAERS Safety Report 4489226-9 (Version None)
Quarter: 2004Q4

REPORT INFORMATION
  Report Type: 
  Country: None (occurrence: None)
  Receive Date: 20041029
  Receipt Date: 20041026
  Transmission Date: 20050328
  Serious: Yes (Other)
  Sender: FDA-Public Use
  Company Number: ES-MERCK-0410ESP00090

PATIENT
  Age: 55 Year
  Sex: Female
  Weight: 46 kg

DRUGS (3)
  1. INDOCIN [Suspect]
     Indication: OSTEOARTHRITIS
     Route: 065
     Dates: start: 20040902, end: 20040903
  2. TETRAZEPAM [Suspect]
     Indication: OSTEOARTHRITIS
     Route: 048
     Dates: start: 20040902, end: 20040903
  3. TRAMADOL HYDROCHLORIDE [Suspect]
     Indication: OSTEOARTHRITIS
     Route: 065
     Dates: start: 20040902, end: 20040903

REACTIONS (2)
  - DRUG INTERACTION [None]
  - SOMNOLENCE [None]
